FAERS Safety Report 11319374 (Version 3)
Quarter: 2015Q4

REPORT INFORMATION
  Report Type: Spontaneous
  Country: JP (occurrence: JP)
  Receive Date: 20150729
  Receipt Date: 20151028
  Transmission Date: 20160304
  Serious: Yes (Hospitalization, Other)
  Sender: FDA-Public Use
  Company Number: PHJP2015JP012404

PATIENT
  Age: 30 Year
  Sex: Male
  Weight: 72 kg

DRUGS (4)
  1. CLOZARIL [Suspect]
     Active Substance: CLOZAPINE
     Dosage: 200 MG, BID
     Route: 048
     Dates: start: 20150719
  2. BUSCOPAN A [Concomitant]
     Indication: SALIVARY HYPERSECRETION
     Dosage: 10 MG, QD
     Route: 048
     Dates: start: 20141009, end: 20150717
  3. CLOZARIL [Suspect]
     Active Substance: CLOZAPINE
     Dosage: 200 MG, BID
     Route: 048
     Dates: start: 20141009, end: 20150717
  4. CLOZARIL [Suspect]
     Active Substance: CLOZAPINE
     Indication: SCHIZOPHRENIA
     Dosage: UNK
     Route: 048
     Dates: start: 20140828

REACTIONS (5)
  - Appendicitis [Recovered/Resolved]
  - Peritonitis [Recovered/Resolved]
  - Nausea [Unknown]
  - Abdominal pain lower [Unknown]
  - Pyrexia [Unknown]

NARRATIVE: CASE EVENT DATE: 20150710
